FAERS Safety Report 10424222 (Version 1)
Quarter: 2014Q3

REPORT INFORMATION
  Report Type: Report from Study
  Country: US (occurrence: US)
  Receive Date: 20140902
  Receipt Date: 20140902
  Transmission Date: 20150326
  Serious: Yes (Other)
  Sender: FDA-Public Use
  Company Number: US-PFIZER INC-2014240390

PATIENT
  Age: 76 Year
  Sex: Female

DRUGS (3)
  1. ATENOLOL. [Suspect]
     Active Substance: ATENOLOL
     Indication: HYPERTENSION
     Dosage: UNK
     Route: 048
  2. CRESTOR [Suspect]
     Active Substance: ROSUVASTATIN CALCIUM
     Indication: CEREBROVASCULAR ACCIDENT PROPHYLAXIS
     Dosage: 10 MG, UNK
     Route: 048
     Dates: start: 201407, end: 201407
  3. CRESTOR [Suspect]
     Active Substance: ROSUVASTATIN CALCIUM
     Indication: BLOOD CHOLESTEROL INCREASED
     Dosage: 5 MG, DAILY
     Route: 048
     Dates: start: 201407, end: 201407

REACTIONS (11)
  - Mental impairment [Unknown]
  - Hypertension [Unknown]
  - Cerebrovascular accident [Recovering/Resolving]
  - Arterial occlusive disease [Unknown]
  - Cataract [Unknown]
  - Diabetes mellitus [Unknown]
  - Drug ineffective [Unknown]
  - Hypokinesia [Unknown]
  - Blood cholesterol increased [Unknown]
  - Activities of daily living impaired [Unknown]
  - Body height decreased [Not Recovered/Not Resolved]

NARRATIVE: CASE EVENT DATE: 2011
